FAERS Safety Report 5497229-0 (Version None)
Quarter: 2007Q4

REPORT INFORMATION
  Report Type: 
  Country: None (occurrence: None)
  Receive Date: 20071025
  Receipt Date: 20060914
  Transmission Date: 20080405
  Serious: No
  Sender: FDA-Public Use
  Company Number: A0620178A

PATIENT
  Age: 42 Year
  Sex: Female

DRUGS (3)
  1. ADVAIR DISKUS 100/50 [Suspect]
     Indication: ASTHMA
     Dosage: 1PUFF TWICE PER DAY
     Route: 055
     Dates: start: 20050101
  2. UNKNOWN MEDICATION [Concomitant]
  3. NASONEX [Concomitant]

REACTIONS (4)
  - COUGH [None]
  - DIARRHOEA [None]
  - NAUSEA [None]
  - STOMACH DISCOMFORT [None]
